FAERS Safety Report 16175282 (Version 1)
Quarter: 2019Q2

REPORT INFORMATION
  Report Type: Spontaneous
  Country: US (occurrence: US)
  Receive Date: 20190409
  Receipt Date: 20190409
  Transmission Date: 20190711
  Serious: Yes (Hospitalization)
  Sender: FDA-Public Use
  Company Number: US-NORTHSTAR HEALTHCARE HOLDINGS-US-2019NSR000111

PATIENT
  Age: 54 Year
  Sex: Female

DRUGS (1)
  1. BACLOFEN. [Suspect]
     Active Substance: BACLOFEN
     Indication: PRODUCT USED FOR UNKNOWN INDICATION
     Dosage: 40 DF, UNK

REACTIONS (6)
  - Overdose [Unknown]
  - Hypotension [Recovering/Resolving]
  - Unresponsive to stimuli [Recovered/Resolved]
  - Sinus arrest [Recovered/Resolved]
  - Cardiac arrest [Recovering/Resolving]
  - Bradycardia [Recovering/Resolving]
